FAERS Safety Report 16314120 (Version 1)
Quarter: 2019Q2

REPORT INFORMATION
  Report Type: Spontaneous
  Country: US (occurrence: US)
  Receive Date: 20190514
  Receipt Date: 20190514
  Transmission Date: 20190711
  Serious: Yes (Other)
  Sender: FDA-Public Use
  Company Number: None

PATIENT
  Age: 64 Year
  Sex: Male
  Weight: 58.5 kg

DRUGS (2)
  1. ALPHAGAN P [Suspect]
     Active Substance: BRIMONIDINE TARTRATE
     Indication: INTRAOCULAR PRESSURE INCREASED
     Dosage: ?          QUANTITY:1 DROP(S);?
     Route: 047
     Dates: start: 20190426, end: 20190428
  2. XALATAN [Suspect]
     Active Substance: LATANOPROST
     Indication: INTRAOCULAR PRESSURE INCREASED
     Dosage: ?          QUANTITY:1 DROP(S);?
     Route: 047
     Dates: start: 20190315, end: 20190428

REACTIONS (2)
  - Vision blurred [None]
  - Dizziness [None]

NARRATIVE: CASE EVENT DATE: 20190429
